FAERS Safety Report 17605318 (Version 1)
Quarter: 2020Q1

REPORT INFORMATION
  Report Type: Spontaneous
  Country: AU (occurrence: AU)
  Receive Date: 20200331
  Receipt Date: 20200331
  Transmission Date: 20200409
  Serious: Yes (Other)
  Sender: FDA-Public Use
  Company Number: AU-SA-2020SA072232

PATIENT
  Age: 34 Year
  Sex: Female

DRUGS (6)
  1. ENOXAPARIN SODIUM. [Suspect]
     Active Substance: ENOXAPARIN SODIUM
     Dosage: 200 MG
  2. CYCLOPHOSPHAMIDE MONOHYDRATE [Concomitant]
     Active Substance: CYCLOPHOSPHAMIDE
     Indication: ANTIPHOSPHOLIPID SYNDROME
     Dosage: 1.5 G
     Route: 042
  3. RITUXIMAB. [Concomitant]
     Active Substance: RITUXIMAB
     Indication: ANTIPHOSPHOLIPID SYNDROME
     Dosage: 1 G
  4. ACETYLSALICYLIC ACID [Suspect]
     Active Substance: ASPIRIN
     Dosage: 100 MG
  5. HYDROXYCHLOROQUINE [Suspect]
     Active Substance: HYDROXYCHLOROQUINE
     Dosage: 200 MG
  6. HEPARIN SODIUM. [Concomitant]
     Active Substance: HEPARIN SODIUM

REACTIONS (11)
  - Thrombotic microangiopathy [Recovered/Resolved]
  - Transient ischaemic attack [Recovered/Resolved]
  - Abortion spontaneous [Recovered/Resolved]
  - Deep vein thrombosis [Recovered/Resolved]
  - Myocardial hypoperfusion [Recovered/Resolved]
  - Adrenal haemorrhage [Recovered/Resolved]
  - Cerebral infarction [Recovered/Resolved]
  - Myocarditis [Recovered/Resolved]
  - Pulmonary embolism [Recovered/Resolved]
  - Pulmonary infarction [Recovered/Resolved]
  - Atrial septal defect [Recovered/Resolved]
